FAERS Safety Report 8989747 (Version 1)
Quarter: 2012Q4

REPORT INFORMATION
  Report Type: 
  Country: GB (occurrence: GB)
  Receive Date: 20121228
  Receipt Date: 20121228
  Transmission Date: 20130627
  Serious: Yes (Other)
  Sender: FDA-Public Use
  Company Number: GB-PFIZER INC-2012331242

PATIENT
  Age: 61 Year

DRUGS (17)
  1. IBUPROFEN [Suspect]
     Indication: PAIN
     Dosage: 400 mg, 3x/day
     Route: 048
     Dates: start: 20121120
  2. IBUPROFEN [Suspect]
     Dosage: 400 mg, UNK
     Route: 065
     Dates: start: 20121126, end: 20121127
  3. BISOPROLOL [Concomitant]
     Route: 048
  4. CARBOCISTEINE [Concomitant]
     Route: 048
  5. CLEXANE [Concomitant]
     Route: 058
     Dates: start: 20121021
  6. CO-CODAMOL [Concomitant]
     Route: 048
  7. COLCHICINE [Concomitant]
     Route: 048
  8. DOXYCYCLINE [Concomitant]
     Route: 048
  9. FEXOFENADINE [Concomitant]
     Route: 048
  10. LORAZEPAM [Concomitant]
     Route: 048
     Dates: start: 20121105
  11. MORPHINE HYDROCHLORIDE [Concomitant]
     Route: 048
  12. MST CONTINUS [Concomitant]
     Route: 048
  13. OMEPRAZOLE [Concomitant]
     Route: 048
  14. PARACETAMOL [Concomitant]
     Route: 048
  15. RAMIPRIL [Concomitant]
     Route: 048
  16. SERETIDE [Concomitant]
     Route: 055
  17. TRAMADOL HYDROCHLORIDE [Concomitant]
     Route: 048

REACTIONS (3)
  - Skin exfoliation [Recovering/Resolving]
  - Erythema [Recovering/Resolving]
  - Dermatitis [Recovering/Resolving]
